FAERS Safety Report 13999212 (Version 1)
Quarter: 2017Q3

REPORT INFORMATION
  Report Type: Spontaneous
  Country: AU (occurrence: AU)
  Receive Date: 20170922
  Receipt Date: 20170922
  Transmission Date: 20171128
  Serious: Yes (Other)
  Sender: FDA-Public Use
  Company Number: AU-LUPIN (EUROPE) LIMITED-2012-00507

PATIENT
  Age: 35 Year
  Sex: Male

DRUGS (1)
  1. PAROXETINE HYDROCHLORIDE. [Suspect]
     Active Substance: PAROXETINE HYDROCHLORIDE
     Indication: PARTNER STRESS
     Dosage: 20 MG, QD
     Route: 065

REACTIONS (4)
  - Akathisia [Recovered/Resolved]
  - Homicide [Unknown]
  - Amnesia [Recovered/Resolved]
  - Automatism [Recovered/Resolved]
